FAERS Safety Report 11722952 (Version 4)
Quarter: 2015Q4

REPORT INFORMATION
  Report Type: Report from Study
  Country: PL (occurrence: PL)
  Receive Date: 20151111
  Receipt Date: 20151204
  Transmission Date: 20160304
  Serious: Yes (Other)
  Sender: FDA-Public Use
  Company Number: PL-BIOGENIDEC-2015BI148910

PATIENT
  Age: 42 Year
  Sex: Female
  Weight: 56 kg

DRUGS (7)
  1. GASEC [Concomitant]
     Indication: PROPHYLAXIS
     Route: 048
     Dates: start: 200501
  2. BG00012 [Suspect]
     Active Substance: DIMETHYL FUMARATE
     Indication: RELAPSING-REMITTING MULTIPLE SCLEROSIS
     Route: 048
     Dates: start: 20100802
  3. CLONAZEPAM. [Concomitant]
     Active Substance: CLONAZEPAM
     Indication: DYSTHYMIC DISORDER
     Route: 048
     Dates: start: 20100503
  4. LOKREN [Concomitant]
     Active Substance: BETAXOLOL HYDROCHLORIDE
     Indication: PROPHYLAXIS
     Route: 048
     Dates: start: 20120309
  5. BG00012 [Suspect]
     Active Substance: DIMETHYL FUMARATE
     Indication: RELAPSING-REMITTING MULTIPLE SCLEROSIS
     Route: 048
     Dates: start: 20140923, end: 20150331
  6. PREDUCTAL MR [Concomitant]
     Active Substance: TRIMETAZIDINE DIHYDROCHLORIDE
     Indication: MITRAL VALVE INCOMPETENCE
     Route: 048
     Dates: start: 200703
  7. TOLPERIS [Concomitant]
     Indication: MULTIPLE SCLEROSIS
     Route: 048
     Dates: start: 20100503

REACTIONS (1)
  - Progressive multifocal leukoencephalopathy [Not Recovered/Not Resolved]

NARRATIVE: CASE EVENT DATE: 20151021
